FAERS Safety Report 5353906-3 (Version None)
Quarter: 2007Q2

REPORT INFORMATION
  Report Type: 
  Country: None (occurrence: None)
  Receive Date: 20070518
  Receipt Date: 20070313
  Transmission Date: 20071010
  Serious: No
  Sender: FDA-Public Use
  Company Number: TPA2006A01920

PATIENT
  Sex: Female
  Weight: 59.8748 kg

DRUGS (6)
  1. ROZEREM [Suspect]
     Indication: INSOMNIA
     Dosage: PER ORAL
     Route: 048
     Dates: start: 20061021, end: 20061023
  2. WELLBUTRIN XL [Concomitant]
  3. ASPIRIN [Concomitant]
  4. ES TYLENOL (PARACETAMOL) [Concomitant]
  5. MVI W/MINERALS (VITAMINS NOS, MINERALS NOS) [Concomitant]
  6. PROTONIX [Concomitant]

REACTIONS (1)
  - LIP SWELLING [None]
